FAERS Safety Report 7210572-X (Version None)
Quarter: 2011Q1

REPORT INFORMATION
  Report Type: 
  Country: None (occurrence: None)
  Receive Date: 20110105
  Receipt Date: 20101227
  Transmission Date: 20110831
  Serious: Yes (Death, Hospitalization, Other)
  Sender: FDA-Public Use
  Company Number: JP-JNJFOC-20101208736

PATIENT
  Age: 61 Year
  Sex: Female
  Weight: 66 kg

DRUGS (14)
  1. ALOSENN [Concomitant]
     Indication: CONSTIPATION
     Route: 048
  2. OXYCONTIN [Concomitant]
     Indication: OVARIAN CANCER RECURRENT
     Route: 048
  3. DOXORUBICIN HCL [Suspect]
     Dosage: CYCLE 1
     Route: 042
  4. WARFARIN [Concomitant]
     Indication: DEEP VEIN THROMBOSIS
     Route: 048
  5. DEXALTIN [Concomitant]
     Indication: PALMAR-PLANTAR ERYTHRODYSAESTHESIA SYNDROME
     Route: 061
  6. DOXORUBICIN HCL [Suspect]
     Indication: OVARIAN CANCER RECURRENT
     Dosage: CYCLE 3
     Route: 042
  7. MYSLEE [Concomitant]
     Indication: PROPHYLAXIS
     Route: 048
  8. MUCOSTA [Concomitant]
     Indication: PROPHYLAXIS
     Route: 048
  9. OXYCONTIN [Concomitant]
     Route: 048
  10. POVIDONE IODINE [Concomitant]
     Indication: STOMATITIS
     Route: 049
  11. MAGLAX [Concomitant]
     Indication: CONSTIPATION
     Route: 048
  12. DOXORUBICIN HCL [Suspect]
     Dosage: CYCLE 2
     Route: 042
  13. OXINORM [Concomitant]
     Indication: OVARIAN CANCER RECURRENT
     Route: 048
  14. MORPHINE HYDROCHLORIDE [Concomitant]
     Indication: OVARIAN CANCER RECURRENT
     Route: 042

REACTIONS (3)
  - ASCITES [None]
  - PLEURAL EFFUSION [None]
  - OVARIAN CANCER [None]
